FAERS Safety Report 11401284 (Version 2)
Quarter: 2017Q4

REPORT INFORMATION
  Report Type: Spontaneous
  Country: US (occurrence: US)
  Receive Date: 20150820
  Receipt Date: 20171006
  Transmission Date: 20180320
  Serious: No
  Sender: FDA-Public Use
  Company Number: US-LUNDBECK-DKLU2001062

PATIENT
  Sex: Male

DRUGS (2)
  1. NORTHERA [Suspect]
     Active Substance: DROXIDOPA
     Indication: ORTHOSTATIC HYPOTENSION
     Route: 048
     Dates: start: 20140922
  2. NORTHERA [Suspect]
     Active Substance: DROXIDOPA
     Route: 048
     Dates: start: 201603

REACTIONS (4)
  - Musculoskeletal pain [Not Recovered/Not Resolved]
  - Balance disorder [Unknown]
  - Toothache [Unknown]
  - Dizziness [Not Recovered/Not Resolved]
